FAERS Safety Report 12475660 (Version 10)
Quarter: 2016Q4

REPORT INFORMATION
  Report Type: Report from Study
  Country: US (occurrence: US)
  Receive Date: 20160617
  Receipt Date: 20161123
  Transmission Date: 20170207
  Serious: Yes (Other)
  Sender: FDA-Public Use
  Company Number: US-BAYER-2016-116808

PATIENT
  Age: 68 Year
  Sex: Female
  Weight: 84.81 kg

DRUGS (10)
  1. ADEMPAS [Suspect]
     Active Substance: RIOCIGUAT
     Indication: PULMONARY ARTERIAL HYPERTENSION
     Dosage: 1.5 MG, TID
     Route: 048
  2. ADEMPAS [Suspect]
     Active Substance: RIOCIGUAT
     Indication: PULMONARY ARTERIAL HYPERTENSION
     Dosage: 2 MG, TID
  3. ADEMPAS [Suspect]
     Active Substance: RIOCIGUAT
     Indication: PULMONARY ARTERIAL HYPERTENSION
     Dosage: 1 MG, TID
     Route: 048
  4. ADEMPAS [Suspect]
     Active Substance: RIOCIGUAT
     Indication: PULMONARY ARTERIAL HYPERTENSION
     Dosage: 2 MG, TID
     Route: 048
  5. ADEMPAS [Suspect]
     Active Substance: RIOCIGUAT
     Indication: PULMONARY ARTERIAL HYPERTENSION
     Dosage: 0.5 MG, TID
     Route: 048
  6. DILTIAZEM. [Concomitant]
     Active Substance: DILTIAZEM
     Dosage: UNK
  7. ADEMPAS [Suspect]
     Active Substance: RIOCIGUAT
     Indication: PULMONARY ARTERIAL HYPERTENSION
     Dosage: UNK
     Dates: start: 20160517
  8. ADEMPAS [Suspect]
     Active Substance: RIOCIGUAT
     Indication: PULMONARY ARTERIAL HYPERTENSION
     Dosage: 2.5 MG, TID
     Route: 048
  9. ADEMPAS [Suspect]
     Active Substance: RIOCIGUAT
     Indication: PULMONARY ARTERIAL HYPERTENSION
     Dosage: 1.5 MG, TID
     Route: 048
  10. OPSUMIT [Concomitant]
     Active Substance: MACITENTAN
     Dosage: UNK

REACTIONS (40)
  - Limb mass [None]
  - Periorbital oedema [None]
  - Abdominal distension [None]
  - Feeling abnormal [Unknown]
  - Myalgia [Unknown]
  - Pain in extremity [None]
  - Flushing [None]
  - Fatigue [None]
  - Peripheral swelling [None]
  - Drug dose omission [Unknown]
  - Visual impairment [None]
  - Chest discomfort [None]
  - Oedema [None]
  - Myalgia [None]
  - Feeling hot [None]
  - Back pain [None]
  - Bedridden [Unknown]
  - Headache [None]
  - Arthralgia [None]
  - Contusion [None]
  - Blood pressure diastolic decreased [None]
  - Weight increased [None]
  - Dyspnoea [None]
  - Oedema peripheral [None]
  - Sinus congestion [Unknown]
  - Pain [Unknown]
  - Constipation [None]
  - Head discomfort [None]
  - Hypotension [None]
  - Pain in jaw [None]
  - Gastrooesophageal reflux disease [None]
  - Arthralgia [Unknown]
  - Dyspnoea [Unknown]
  - Subcutaneous haematoma [None]
  - Dizziness [None]
  - Upper respiratory tract congestion [Unknown]
  - Musculoskeletal pain [None]
  - Heart rate increased [None]
  - Feeling cold [None]
  - Epistaxis [None]
